FAERS Safety Report 16945031 (Version 1)
Quarter: 2019Q4

REPORT INFORMATION
  Report Type: Spontaneous
  Country: JP (occurrence: JP)
  Receive Date: 20191022
  Receipt Date: 20191022
  Transmission Date: 20200122
  Serious: Yes (Death, Other)
  Sender: FDA-Public Use
  Company Number: JP-PFIZER INC-2019383018

PATIENT
  Age: 40 Year
  Sex: Female

DRUGS (1)
  1. BESPONSA [Suspect]
     Active Substance: INOTUZUMAB OZOGAMICIN
     Indication: ACUTE LYMPHOCYTIC LEUKAEMIA
     Dosage: UNK UNK, SINGLE
     Route: 042
     Dates: start: 20190704, end: 20190704

REACTIONS (3)
  - Multiple organ dysfunction syndrome [Fatal]
  - Venoocclusive liver disease [Recovering/Resolving]
  - Neoplasm progression [Fatal]
